FAERS Safety Report 18012567 (Version 1)
Quarter: 2020Q3

REPORT INFORMATION
  Report Type: Spontaneous
  Country: US (occurrence: US)
  Receive Date: 20200713
  Receipt Date: 20200713
  Transmission Date: 20201103
  Serious: Yes (Hospitalization, Other)
  Sender: FDA-Public Use
  Company Number: NVSC2020US194211

PATIENT
  Age: 36 Year
  Sex: Female

DRUGS (4)
  1. MYCOPHENOLATE MOFETIL. [Suspect]
     Active Substance: MYCOPHENOLATE MOFETIL
     Indication: MYASTHENIA GRAVIS
     Dosage: 1000 MG, BID FOR 20 MONTHS
     Route: 065
  2. PREDNISONE. [Suspect]
     Active Substance: PREDNISONE
     Dosage: 40 MG, QD AT DIAGNOSIS
     Route: 065
  3. PYRIDOSTIGMINE [Suspect]
     Active Substance: PYRIDOSTIGMINE
     Indication: MYASTHENIA GRAVIS
     Dosage: 60 MG, TID FOR 24 MONTHS
     Route: 065
  4. PREDNISONE. [Suspect]
     Active Substance: PREDNISONE
     Indication: MYASTHENIA GRAVIS
     Dosage: 25 MG FOR 4 MONTHS
     Route: 048

REACTIONS (10)
  - Myasthenia gravis [Recovered/Resolved]
  - Dyspnoea [Unknown]
  - Pyrexia [Unknown]
  - Dysphagia [Unknown]
  - Asthenia [Unknown]
  - COVID-19 [Unknown]
  - Anosmia [Unknown]
  - Cough [Unknown]
  - Product use in unapproved indication [Unknown]
  - Eyelid ptosis [Unknown]
